FAERS Safety Report 24624332 (Version 1)
Quarter: 2024Q4

REPORT INFORMATION
  Report Type: Spontaneous
  Country: US (occurrence: US)
  Receive Date: 20241115
  Receipt Date: 20241115
  Transmission Date: 20250114
  Serious: No
  Sender: UROGEN PHARMA
  Company Number: US-UROGEN PHARMA LTD.-2024-UGN-000141

PATIENT

DRUGS (3)
  1. JELMYTO [Suspect]
     Active Substance: MITOMYCIN
     Indication: Renal neoplasm
     Dosage: UNK, (INSTILLATION)
     Route: 065
     Dates: start: 2024, end: 2024
  2. JELMYTO [Suspect]
     Active Substance: MITOMYCIN
     Dosage: UNK, (INSTILLATION)
     Route: 065
     Dates: start: 2024, end: 2024
  3. JELMYTO [Suspect]
     Active Substance: MITOMYCIN
     Dosage: UNK, (INSTILLATION)
     Route: 065
     Dates: start: 202409, end: 202409

REACTIONS (10)
  - Off label use [Unknown]
  - Decreased appetite [Unknown]
  - Flank pain [Recovered/Resolved]
  - Flank pain [Unknown]
  - Flank pain [Unknown]
  - Fatigue [Recovered/Resolved]
  - Fatigue [Unknown]
  - Fatigue [Unknown]
  - Vomiting [Unknown]
  - Nausea [Not Recovered/Not Resolved]

NARRATIVE: CASE EVENT DATE: 20240101
